FAERS Safety Report 9343703 (Version 1)
Quarter: 2013Q2

REPORT INFORMATION
  Report Type: Report from Study
  Country: NL (occurrence: NL)
  Receive Date: 20130612
  Receipt Date: 20130612
  Transmission Date: 20140414
  Serious: Yes (Other)
  Sender: FDA-Public Use
  Company Number: PHHY2013NL059331

PATIENT
  Age: 65 Year
  Sex: Female

DRUGS (3)
  1. ZOMETA [Suspect]
     Indication: BREAST CANCER METASTATIC
     Dosage: 4 MG, ONCE EVERY 4 WEEKS
     Route: 042
  2. ZOMETA [Suspect]
     Dosage: 4 MG, ONCE EVERY 4 WEEKS
     Route: 042
     Dates: start: 20120521
  3. ZOMETA [Suspect]
     Dosage: 4 MG, ONCE EVERY 4 WEEKS
     Route: 042
     Dates: start: 20130503

REACTIONS (1)
  - Abscess jaw [Unknown]
